FAERS Safety Report 9965062 (Version 1)
Quarter: 2014Q1

REPORT INFORMATION
  Report Type: Report from Study
  Country: US (occurrence: US)
  Receive Date: 20140305
  Receipt Date: 20140305
  Transmission Date: 20141002
  Serious: No
  Sender: FDA-Public Use
  Company Number: US-ABBVIE-13P-163-1128204-00

PATIENT
  Age: 66 Year
  Sex: Female

DRUGS (20)
  1. HUMIRA [Suspect]
     Indication: CROHN^S DISEASE
     Route: 058
     Dates: start: 20130506
  2. HUMIRA [Suspect]
     Indication: EYE INFLAMMATION
  3. TIMOLOL [Concomitant]
     Indication: ABNORMAL SENSATION IN EYE
     Dosage: 1 DROP DAILY LEFT EYE
  4. CORTISONE [Concomitant]
     Indication: PRODUCT USED FOR UNKNOWN INDICATION
     Dosage: LEFT EYE
  5. SYNTHROID [Concomitant]
     Indication: HYPOTHYROIDISM
     Dosage: 25 MCG DAILY
  6. ASACOL [Concomitant]
     Indication: CROHN^S DISEASE
  7. CYMBALTA [Concomitant]
     Indication: FIBROMYALGIA
  8. SINGULAIR [Concomitant]
     Indication: ASTHMA
  9. SINGULAIR [Concomitant]
     Indication: HYPERSENSITIVITY
  10. BUDESONIDE [Concomitant]
     Indication: INFLAMMATION
  11. ATORVASTATIN [Concomitant]
     Indication: BLOOD CHOLESTEROL INCREASED
  12. DEXILANT [Concomitant]
     Indication: GASTROOESOPHAGEAL REFLUX DISEASE
     Dosage: 60 MG DAILY
  13. AMBIEN [Concomitant]
     Indication: INSOMNIA
     Dosage: AT BEDTIME
  14. AMBIEN [Concomitant]
     Indication: PAIN
  15. XANAX [Concomitant]
     Indication: PAIN
  16. TYLENOL [Concomitant]
     Indication: PAIN
     Dosage: TAKE WITH XANAX
  17. LISINOPRIL [Concomitant]
     Indication: HYPERTENSION
  18. PROCARDIA [Concomitant]
     Indication: HYPERTENSION
  19. HYDRALAZINE [Concomitant]
     Indication: HYPERTENSION
  20. TRIAMTERENE/HCTZ [Concomitant]
     Indication: HYPERTENSION
     Dosage: 37.5/25 MG IN THE MORNING

REACTIONS (1)
  - Eye disorder [Not Recovered/Not Resolved]
